FAERS Safety Report 17273884 (Version 1)
Quarter: 2020Q1

REPORT INFORMATION
  Report Type: Spontaneous
  Country: US (occurrence: US)
  Receive Date: 20191225
  Receipt Date: 20191225
  Transmission Date: 20200409
  Serious: Yes (Hospitalization)
  Sender: FDA-Public Use
  Company Number: None

PATIENT
  Age: 74 Year
  Sex: Female
  Weight: 53.2 kg

DRUGS (1)
  1. TEMOZOLOMIDE. [Suspect]
     Active Substance: TEMOZOLOMIDE
     Dates: end: 20190611

REACTIONS (5)
  - Central nervous system necrosis [None]
  - Balance disorder [None]
  - Metabolic disorder [None]
  - Radiation overdose [None]
  - Hemiparesis [None]

NARRATIVE: CASE EVENT DATE: 20191217
